FAERS Safety Report 17840206 (Version 3)
Quarter: 2020Q3

REPORT INFORMATION
  Report Type: Spontaneous
  Country: US (occurrence: US)
  Receive Date: 20200529
  Receipt Date: 20200706
  Transmission Date: 20201103
  Serious: No
  Sender: FDA-Public Use
  Company Number: US-GLAXOSMITHKLINE-US2020AMR089208

PATIENT
  Sex: Female

DRUGS (2)
  1. ZEJULA [Suspect]
     Active Substance: NIRAPARIB
     Indication: OVARIAN CANCER
  2. ZEJULA [Suspect]
     Active Substance: NIRAPARIB
     Indication: MALIGNANT PERITONEAL NEOPLASM
     Dosage: 200 MG, QD IN THE PM WITH FOOD
     Dates: start: 20200306

REACTIONS (10)
  - Nausea [Recovering/Resolving]
  - Fatigue [Unknown]
  - Carbohydrate antigen 125 increased [Unknown]
  - Underdose [Unknown]
  - Papule [Unknown]
  - Abdominal distension [Unknown]
  - Urinary tract infection [Unknown]
  - Abdominal discomfort [Unknown]
  - Taste disorder [Unknown]
  - Dry skin [Unknown]
